FAERS Safety Report 23235449 (Version 8)
Quarter: 2024Q2

REPORT INFORMATION
  Report Type: Spontaneous
  Country: CR (occurrence: CR)
  Receive Date: 20231128
  Receipt Date: 20240423
  Transmission Date: 20240715
  Serious: No
  Sender: FDA-Public Use
  Company Number: CR-PFIZER INC-PV202300185452

PATIENT
  Age: 9 Year
  Sex: Male

DRUGS (1)
  1. GENOTROPIN [Suspect]
     Active Substance: SOMATROPIN
     Dosage: 0.8 MG, DAILY
     Route: 058

REACTIONS (4)
  - Device power source issue [Unknown]
  - Device leakage [Unknown]
  - Device malfunction [Unknown]
  - Device failure [Unknown]
